FAERS Safety Report 24236504 (Version 1)
Quarter: 2024Q3

REPORT INFORMATION
  Report Type: Spontaneous
  Country: IN (occurrence: None)
  Receive Date: 20240822
  Receipt Date: 20240822
  Transmission Date: 20241016
  Serious: Yes (Hospitalization, Other)
  Sender: ASTRAZENECA
  Company Number: 2024A187761

PATIENT
  Age: 58 Year
  Sex: Male
  Weight: 65 kg

DRUGS (2)
  1. BRILINTA [Suspect]
     Active Substance: TICAGRELOR
     Indication: Coronary angioplasty
     Route: 048
     Dates: start: 20240506, end: 20240813
  2. BRILINTA [Concomitant]
     Active Substance: TICAGRELOR
     Indication: Coronary angioplasty
     Route: 048

REACTIONS (1)
  - Vascular stent thrombosis [Not Recovered/Not Resolved]

NARRATIVE: CASE EVENT DATE: 20240810
